FAERS Safety Report 14367697 (Version 1)
Quarter: 2018Q1

REPORT INFORMATION
  Report Type: Spontaneous
  Country: HR (occurrence: HR)
  Receive Date: 20180108
  Receipt Date: 20180108
  Transmission Date: 20180509
  Serious: Yes (Hospitalization)
  Sender: FDA-Public Use
  Company Number: None

PATIENT
  Age: 28 Year
  Sex: Female
  Weight: 60 kg

DRUGS (3)
  1. BELODERM [Suspect]
     Active Substance: BETAMETHASONE DIPROPIONATE
     Indication: DERMATITIS
     Dates: end: 20161015
  2. BELOBAZA [Suspect]
     Active Substance: PETROLATUM
     Indication: DERMATITIS
  3. MAXITROL [Suspect]
     Active Substance: DEXAMETHASONE\NEOMYCIN SULFATE\POLYMYXIN B SULFATE
     Indication: DERMATITIS
     Dates: start: 20150401, end: 20161008

REACTIONS (18)
  - Pruritus [None]
  - Dry skin [None]
  - Depressed mood [None]
  - Secretion discharge [None]
  - Swelling [None]
  - Skin exfoliation [None]
  - Scab [None]
  - Drug ineffective [None]
  - Skin wrinkling [None]
  - Movement disorder [None]
  - Mental disorder [None]
  - Eczema [None]
  - Swelling face [None]
  - Neuralgia [None]
  - Skin tightness [None]
  - Insomnia [None]
  - Breast discharge [None]
  - Feeling of despair [None]

NARRATIVE: CASE EVENT DATE: 20161204
